FAERS Safety Report 23874787 (Version 1)
Quarter: 2024Q2

REPORT INFORMATION
  Report Type: Spontaneous
  Country: US (occurrence: US)
  Receive Date: 20240520
  Receipt Date: 20240520
  Transmission Date: 20240715
  Serious: No
  Sender: FDA-Public Use
  Company Number: US-Blueprint Medicines Corporation-3538

PATIENT
  Sex: Male

DRUGS (3)
  1. AYVAKIT [Suspect]
     Active Substance: AVAPRITINIB
     Indication: Indolent systemic mastocytosis
     Route: 048
     Dates: start: 20240112
  2. AYVAKIT [Suspect]
     Active Substance: AVAPRITINIB
     Indication: Systemic mastocytosis
  3. DOXYCYCLINE [Suspect]
     Active Substance: DOXYCYCLINE
     Indication: Infection
     Route: 065

REACTIONS (3)
  - Cellulitis [Unknown]
  - Abdominal discomfort [Unknown]
  - Incorrect route of product administration [Unknown]
